FAERS Safety Report 7920452-X (Version None)
Quarter: 2011Q4

REPORT INFORMATION
  Report Type: 
  Country: None (occurrence: None)
  Receive Date: 20111117
  Receipt Date: 20111109
  Transmission Date: 20120403
  Serious: Yes (Other)
  Sender: FDA-Public Use
  Company Number: PHHY2011PH098140

PATIENT
  Sex: Male

DRUGS (5)
  1. GLEEVEC [Suspect]
     Indication: CHRONIC MYELOID LEUKAEMIA
     Dosage: 300 MG, QD
     Route: 048
     Dates: start: 20031120
  2. GLEEVEC [Suspect]
     Dosage: 400 MG PER DAY
     Route: 048
     Dates: start: 20110601
  3. GLEEVEC [Suspect]
     Dosage: 400 MG PER DAY
     Route: 048
  4. GLEEVEC [Suspect]
     Dosage: 300 MG, QD
     Route: 048
     Dates: start: 20111104
  5. GLEEVEC [Suspect]
     Dosage: 300 MG PER DAY
     Route: 048
     Dates: start: 20110801

REACTIONS (7)
  - PLATELET COUNT DECREASED [None]
  - GINGIVAL HYPERPLASIA [None]
  - BONE MARROW FAILURE [None]
  - ANAEMIA [None]
  - RENAL FAILURE CHRONIC [None]
  - MASS [None]
  - WHITE BLOOD CELL COUNT DECREASED [None]
